FAERS Safety Report 6465272-0 (Version None)
Quarter: 2009Q4

REPORT INFORMATION
  Report Type: 
  Country: None (occurrence: None)
  Receive Date: 20091201
  Receipt Date: 20091111
  Transmission Date: 20100525
  Serious: Yes (Hospitalization)
  Sender: FDA-Public Use
  Company Number: PHHY2009VE48027

PATIENT
  Sex: Female

DRUGS (7)
  1. ACLASTA [Suspect]
     Indication: OSTEOPOROSIS
     Dosage: 5 MG PER YEAR
     Dates: start: 20081203
  2. GLUCOSAMINE [Concomitant]
     Dosage: ONCE A DAY
  3. CALCIUM [Concomitant]
     Dosage: UNK
     Dates: start: 20080101
  4. BENICAR HCT [Concomitant]
     Dosage: ONCE A DAY, UNK
     Dates: start: 20070101
  5. ZANIDIP [Concomitant]
     Dosage: 10 MG, QD
     Dates: start: 20070101
  6. ASCORBIC ACID [Concomitant]
  7. FOLIC ACID [Concomitant]
     Dosage: 20 MG, QD
     Route: 048
     Dates: start: 20080101

REACTIONS (1)
  - HIP ARTHROPLASTY [None]
